FAERS Safety Report 9134019 (Version 1)
Quarter: 2013Q1

REPORT INFORMATION
  Report Type: Spontaneous
  Country: US (occurrence: None)
  Receive Date: 20130226
  Receipt Date: 20130226
  Transmission Date: 20140127
  Serious: Yes (Death)
  Sender: FDA-Public Use
  Company Number: None

PATIENT
  Age: 73 Year
  Sex: Female

DRUGS (2)
  1. SENSIPAR [Suspect]
     Indication: HYPERPARATHYROIDISM SECONDARY
     Dosage: 90MG?09/19/2012  TO  01/10/2013
     Dates: start: 20120919, end: 20130110
  2. SENSIPAR [Suspect]
     Indication: RENAL DISORDER
     Dosage: 90MG?09/19/2012  TO  01/10/2013
     Dates: start: 20120919, end: 20130110

REACTIONS (1)
  - Death [None]
